FAERS Safety Report 13231452 (Version 3)
Quarter: 2017Q1

REPORT INFORMATION
  Report Type: Spontaneous
  Country: FR (occurrence: FR)
  Receive Date: 20170214
  Receipt Date: 20170323
  Transmission Date: 20170428
  Serious: Yes (Hospitalization, Other)
  Sender: FDA-Public Use
  Company Number: FR-JNJFOC-20170209659

PATIENT
  Age: 80 Year
  Sex: Female

DRUGS (13)
  1. IMBRUVICA [Suspect]
     Active Substance: IBRUTINIB
     Indication: CHRONIC LYMPHOCYTIC LEUKAEMIA
     Route: 048
     Dates: start: 20161110, end: 20161212
  2. PRAVASTATIN. [Concomitant]
     Active Substance: PRAVASTATIN
  3. EUPRESSYL [Concomitant]
     Active Substance: URAPIDIL
     Route: 065
  4. COUMADINE [Suspect]
     Active Substance: WARFARIN SODIUM
     Indication: DEEP VEIN THROMBOSIS
     Dosage: LONG STANDING THERAPY
     Route: 048
     Dates: end: 20161212
  5. TRIATEC [Concomitant]
     Active Substance: RAMIPRIL
     Route: 065
  6. NEBIVOLOL. [Concomitant]
     Active Substance: NEBIVOLOL
     Route: 065
  7. LEVOFLOXACIN. [Concomitant]
     Active Substance: LEVOFLOXACIN
     Route: 065
  8. COUMADINE [Suspect]
     Active Substance: WARFARIN SODIUM
     Indication: THROMBOPHLEBITIS
     Dosage: LONG STANDING THERAPY
     Route: 048
     Dates: end: 20161212
  9. BACTRIM [Concomitant]
     Active Substance: SULFAMETHOXAZOLE\TRIMETHOPRIM
     Route: 065
  10. LASILIX [Concomitant]
     Active Substance: FUROSEMIDE
     Route: 065
  11. ZELITREX [Concomitant]
     Active Substance: VALACYCLOVIR HYDROCHLORIDE
     Route: 065
  12. ZAMUDOL [Concomitant]
     Active Substance: TRAMADOL HYDROCHLORIDE
     Route: 065
  13. LEXUM [Concomitant]
     Route: 065

REACTIONS (2)
  - Hypertension [Recovering/Resolving]
  - Meningorrhagia [Recovering/Resolving]

NARRATIVE: CASE EVENT DATE: 20161212
